FAERS Safety Report 5200266-4 (Version None)
Quarter: 2007Q1

REPORT INFORMATION
  Report Type: 
  Country: None (occurrence: None)
  Receive Date: 20070103
  Receipt Date: 20061221
  Transmission Date: 20070707
  Serious: Yes (Death, Hospitalization)
  Sender: FDA-Public Use
  Company Number: ABNYB-06-0528

PATIENT
  Age: 66 Year
  Sex: Female
  Weight: 93.8946 kg

DRUGS (8)
  1. ABRAXANE [Suspect]
     Indication: BREAST CANCER METASTATIC
     Dosage: RECEIVED ONE DOSE/520 MG (260 MG/M2), INTRAVENOUS
     Route: 042
     Dates: start: 20061010, end: 20061010
  2. AVANDIA [Concomitant]
  3. AMARYL [Concomitant]
  4. COREG [Concomitant]
  5. PROCARDIA XL [Concomitant]
  6. METFORMIN [Concomitant]
  7. XALATAN (LATANOPROST) (DROPS) [Concomitant]
  8. COLACE (DOCUSATE SODIUM) [Concomitant]

REACTIONS (4)
  - BLOOD BILIRUBIN INCREASED [None]
  - FEBRILE NEUTROPENIA [None]
  - NEUTROPENIC SEPSIS [None]
  - RESPIRATORY FAILURE [None]
